FAERS Safety Report 24668407 (Version 1)
Quarter: 2024Q4

REPORT INFORMATION
  Report Type: Spontaneous
  Country: BR (occurrence: BR)
  Receive Date: 20241127
  Receipt Date: 20241127
  Transmission Date: 20250115
  Serious: Yes (Other)
  Sender: BAXTER
  Company Number: BR-BAXTER-2024BAX027506

PATIENT
  Age: 4 Year
  Sex: Male
  Weight: 16.7 kg

DRUGS (13)
  1. IRON [Suspect]
     Active Substance: IRON
     Indication: Mineral supplementation
     Dosage: 300 MG DILUTED IN 100 ML OF 0.9% SALINE SOLUTION, IN A SINGLE DOSE, ADMINISTERED IN 2 HOURS (65 ML/H
     Route: 042
     Dates: start: 20240731, end: 20240731
  2. IRON [Suspect]
     Active Substance: IRON
     Dosage: 200 MG DILUTED IN 250 ML OF 0.9% SALINE SOLUTION, ADMINISTERED OVER 3 HOURS (86.6 ML/H)
     Route: 042
     Dates: start: 20241024, end: 20241024
  3. SODIUM CHLORIDE [Suspect]
     Active Substance: SODIUM CHLORIDE
     Indication: Medication dilution
     Dosage: 200 MG DILUTED IN 250 ML OF 0.9% SALINE SOLUTION, IN 3 HOUR
     Route: 042
     Dates: start: 20240731, end: 20240731
  4. IRON SUCROSE [Suspect]
     Active Substance: IRON SUCROSE
     Dosage: 200 MG DILUTED IN 250 ML OF 0.9% SALINE SOLUTION, (BLAU)
     Route: 042
     Dates: start: 20240912
  5. ENOXAPARIN [Concomitant]
     Active Substance: ENOXAPARIN
     Indication: Pulmonary embolism
     Dosage: 16 MG ONCE A DAY
     Route: 042
  6. ENOXAPARIN [Concomitant]
     Active Substance: ENOXAPARIN
     Indication: Prophylaxis
  7. TAUROLIDINE [Concomitant]
     Active Substance: TAUROLIDINE
     Indication: Central venous catheterisation
     Dosage: 0.8 ML IN EACH LUMEN FOR BLOCKING SOLUTION, SOLUTION (BACTERICIDE AND FUNGICIDE)
     Route: 042
  8. FOLIC ACID [Concomitant]
     Active Substance: FOLIC ACID
     Indication: Supplementation therapy
     Dosage: 5 MG ONCE A DAY
     Route: 042
     Dates: start: 20241021
  9. LEVOTHYROXINE [Concomitant]
     Active Substance: LEVOTHYROXINE
     Indication: Supplementation therapy
     Dosage: 75 MCG ONCE A DAY
     Route: 048
     Dates: start: 20240731
  10. LEVOTHYROXINE [Concomitant]
     Active Substance: LEVOTHYROXINE
     Dosage: 100 MCG ONCE A DAY
     Route: 048
     Dates: start: 20241024
  11. BUDESONIDE [Concomitant]
     Active Substance: BUDESONIDE
     Indication: Rhinitis allergic
     Dosage: 1 JET (50 MCG) IN EACH NOSTRIL 1 TIME A DAY
     Route: 045
     Dates: start: 20240709, end: 20240808
  12. LEVOCARNITINE [Concomitant]
     Active Substance: LEVOCARNITINE
     Indication: Supplementation therapy
     Dosage: 200 MG ONCE A DAY
     Route: 048
  13. VITAMIN D [Concomitant]
     Active Substance: VITAMIN D NOS
     Indication: Supplementation therapy
     Dosage: 5000 IU A DAY
     Route: 048

REACTIONS (16)
  - Anaphylactic reaction [Recovered/Resolved]
  - Anaphylactic reaction [Recovered/Resolved]
  - Erythema [Recovered/Resolved]
  - Vomiting [Recovered/Resolved]
  - Dysphonia [Recovered/Resolved]
  - Pallor [Recovered/Resolved]
  - Dyspnoea [Recovered/Resolved]
  - Tachypnoea [Recovered/Resolved]
  - Urticaria [Recovered/Resolved]
  - Respiratory distress [Recovered/Resolved]
  - Cyanosis central [Recovered/Resolved]
  - Cyanosis [Recovered/Resolved]
  - Angioedema [Recovered/Resolved]
  - Angioedema [Recovered/Resolved]
  - Oedema peripheral [Recovered/Resolved]
  - Vomiting [Recovered/Resolved]

NARRATIVE: CASE EVENT DATE: 20240731
